FAERS Safety Report 8042817-0 (Version None)
Quarter: 2012Q1

REPORT INFORMATION
  Report Type: 
  Country: None (occurrence: None)
  Receive Date: 20120112
  Receipt Date: 20120102
  Transmission Date: 20120608
  Serious: Yes (Hospitalization)
  Sender: FDA-Public Use
  Company Number: BE-ROCHE-1017830

PATIENT
  Age: 47 Year
  Sex: Male
  Weight: 82 kg

DRUGS (8)
  1. DEANXIT [Concomitant]
     Dosage: 1 CAPSULE
     Dates: start: 20110824
  2. VITAMIN C [Concomitant]
     Dates: start: 20111019
  3. VEMURAFENIB [Suspect]
     Route: 048
     Dates: start: 20111214, end: 20120102
  4. OMEPRAZOLE [Concomitant]
     Dates: start: 20120102
  5. FOLIC ACID [Concomitant]
     Dates: start: 20110824
  6. VEMURAFENIB [Suspect]
     Indication: METASTATIC MALIGNANT MELANOMA
     Route: 048
     Dates: start: 20110824
  7. LORAMET [Concomitant]
     Dates: start: 20111114
  8. SOLU-MEDROL [Concomitant]
     Dosage: IN SHOT
     Route: 042
     Dates: start: 20120102, end: 20120102

REACTIONS (2)
  - MONOPARESIS [None]
  - CEREBRAL HAEMORRHAGE [None]
